FAERS Safety Report 7771835-2 (Version None)
Quarter: 2011Q3

REPORT INFORMATION
  Report Type: 
  Country: None (occurrence: None)
  Receive Date: 20110921
  Receipt Date: 20110921
  Transmission Date: 20111222
  Serious: Yes (Hospitalization)
  Sender: FDA-Public Use
  Company Number: None

PATIENT
  Sex: Male
  Weight: 45.5 kg

DRUGS (3)
  1. METHOTREXATE [Suspect]
     Dosage: 145 MG
  2. PEG-L-ASPARAGINASE [Suspect]
     Dosage: 3250 MG
  3. VINCRISTINE SULFATE [Suspect]
     Dosage: 2 MG

REACTIONS (11)
  - PLATELET COUNT DECREASED [None]
  - TACHYCARDIA [None]
  - OESOPHAGEAL NEOPLASM [None]
  - RED BLOOD CELL COUNT DECREASED [None]
  - HAEMATEMESIS [None]
  - OXYGEN SATURATION DECREASED [None]
  - HAEMATOCRIT DECREASED [None]
  - UPPER GASTROINTESTINAL HAEMORRHAGE [None]
  - HAEMOGLOBIN DECREASED [None]
  - WHITE BLOOD CELL COUNT DECREASED [None]
  - HYPOTENSION [None]
